FAERS Safety Report 13576326 (Version 3)
Quarter: 2017Q3

REPORT INFORMATION
  Report Type: Spontaneous
  Country: GB (occurrence: GB)
  Receive Date: 20170524
  Receipt Date: 20170829
  Transmission Date: 20171127
  Serious: Yes (Other)
  Sender: FDA-Public Use
  Company Number: GB-TEVA-767788ACC

PATIENT
  Sex: Male

DRUGS (2)
  1. VOLIBRIS (GSK) [Suspect]
     Active Substance: AMBRISENTAN
     Dosage: 10 MILLIGRAM DAILY;
     Route: 065
  2. SILDENAFIL. [Suspect]
     Active Substance: SILDENAFIL
     Dosage: 150 MILLIGRAM DAILY;
     Route: 065

REACTIONS (4)
  - Dry mouth [Unknown]
  - Dyspnoea [Unknown]
  - Cough [Unknown]
  - Nasal dryness [Unknown]
